FAERS Safety Report 6457574-9 (Version None)
Quarter: 2009Q4

REPORT INFORMATION
  Report Type: 
  Country: None (occurrence: None)
  Receive Date: 20091125
  Receipt Date: 20091117
  Transmission Date: 20100525
  Serious: Yes (Hospitalization)
  Sender: FDA-Public Use
  Company Number: PHHO2009AT13953

PATIENT
  Sex: Male

DRUGS (8)
  1. AEB071 AEB+ [Suspect]
     Indication: RENAL TRANSPLANT
     Dosage: CODE NOT BROKEN
     Route: 048
     Dates: start: 20080112
  2. CERTICAN [Suspect]
     Dosage: UNK
     Dates: start: 20080112
  3. DELTACORTENE [Concomitant]
     Indication: IMMUNOSUPPRESSION
  4. ADALAT [Concomitant]
     Indication: HYPOTENSION
  5. DOXAZOSIN [Concomitant]
     Indication: HYPOTENSION
     Dosage: UNK
  6. FOSFATON [Concomitant]
     Indication: HYPOPHOSPHATAEMIA
  7. FLUBASON [Concomitant]
     Indication: NEURODERMATITIS
  8. COUMADIN [Concomitant]
     Indication: DEEP VEIN THROMBOSIS

REACTIONS (4)
  - ERYTHEMA OF EYELID [None]
  - EYELID OEDEMA [None]
  - KAPOSI'S VARICELLIFORM ERUPTION [None]
  - NASAL OEDEMA [None]
